FAERS Safety Report 10597756 (Version 1)
Quarter: 2014Q4

REPORT INFORMATION
  Report Type: Spontaneous
  Country: US (occurrence: None)
  Receive Date: 20141120
  Receipt Date: 20141120
  Transmission Date: 20150529
  Serious: Yes (Other)
  Sender: FDA-Public Use
  Company Number: None

PATIENT
  Age: 50 Year
  Sex: Female
  Weight: 81.65 kg

DRUGS (11)
  1. ATORVASTATIN [Suspect]
     Active Substance: ATORVASTATIN
     Indication: HYPERLIPIDAEMIA
     Dosage: ONE QD ORAL
     Route: 048
     Dates: start: 20140101, end: 20140822
  2. XANFLEX [Concomitant]
  3. FLEXERIL [Concomitant]
     Active Substance: CYCLOBENZAPRINE HYDROCHLORIDE
  4. PROTONXI [Concomitant]
  5. HYDRODONE [Concomitant]
  6. CYMBALTA [Concomitant]
     Active Substance: DULOXETINE HYDROCHLORIDE
  7. ASA [Concomitant]
     Active Substance: ASPIRIN
  8. ZANTAC [Concomitant]
     Active Substance: RANITIDINE HYDROCHLORIDE
  9. BACLOFEN. [Concomitant]
     Active Substance: BACLOFEN
  10. ATORVASTATIN [Suspect]
     Active Substance: ATORVASTATIN
     Indication: DIABETES MELLITUS
     Dosage: ONE QD ORAL
     Route: 048
     Dates: start: 20140101, end: 20140822
  11. METFORMIN [Concomitant]
     Active Substance: METFORMIN HYDROCHLORIDE

REACTIONS (2)
  - Myositis [None]
  - Blood creatine phosphokinase increased [None]

NARRATIVE: CASE EVENT DATE: 20140822
